FAERS Safety Report 4383451-3 (Version None)
Quarter: 2004Q2

REPORT INFORMATION
  Report Type: 
  Country: None (occurrence: None)
  Receive Date: 20040622
  Receipt Date: 20040622
  Transmission Date: 20050107
  Serious: Yes (Other)
  Sender: FDA-Public Use
  Company Number: None

PATIENT
  Age: 66 Year
  Sex: Female
  Weight: 106.5953 kg

DRUGS (2)
  1. LIPITOR [Suspect]
     Dosage: 10 MG /D
     Dates: start: 20010201, end: 20010824
  2. WELCHOL [Suspect]
     Dosage: 600 TID

REACTIONS (3)
  - ABDOMINAL PAIN UPPER [None]
  - CHEST PAIN [None]
  - RASH [None]
